FAERS Safety Report 17097836 (Version 1)
Quarter: 2019Q4

REPORT INFORMATION
  Report Type: Spontaneous
  Country: US (occurrence: US)
  Receive Date: 20191105
  Receipt Date: 20191105
  Transmission Date: 20200122
  Serious: No
  Sender: FDA-Public Use
  Company Number: None

PATIENT
  Age: 10 Year
  Sex: Male
  Weight: 57.15 kg

DRUGS (3)
  1. METHYLPHENIDATE CR 27MG [Concomitant]
  2. METHYLPHENIDATE CR 18MG [Concomitant]
  3. METHYLPHENIDATE 36MG [Suspect]
     Active Substance: METHYLPHENIDATE
     Indication: ATTENTION DEFICIT/HYPERACTIVITY DISORDER
     Route: 048
     Dates: start: 20190531

REACTIONS (3)
  - Therapeutic product effect decreased [None]
  - Product substitution issue [None]
  - Educational problem [None]
